FAERS Safety Report 14114539 (Version 4)
Quarter: 2017Q4

REPORT INFORMATION
  Report Type: Spontaneous
  Country: US (occurrence: US)
  Receive Date: 20171023
  Receipt Date: 20171227
  Transmission Date: 20180321
  Serious: Yes (Other)
  Sender: FDA-Public Use
  Company Number: US-PFIZER INC-2017454473

PATIENT
  Sex: Female

DRUGS (1)
  1. ADVIL [Suspect]
     Active Substance: IBUPROFEN
     Indication: ANKYLOSING SPONDYLITIS
     Dosage: 600 MG, DAILY
     Dates: start: 2016

REACTIONS (2)
  - Haematochezia [Recovered/Resolved]
  - Product coating issue [Recovered/Resolved]

NARRATIVE: CASE EVENT DATE: 2016
